FAERS Safety Report 4550933-0 (Version None)
Quarter: 2004Q4

REPORT INFORMATION
  Report Type: 
  Country: None (occurrence: None)
  Receive Date: 20041217
  Receipt Date: 20040819
  Transmission Date: 20050328
  Serious: No
  Sender: FDA-Public Use
  Company Number: 2004-BP-07047BP(0)

PATIENT
  Age: 61 Year
  Sex: Female

DRUGS (8)
  1. SPIRIVA [Suspect]
     Indication: CHRONIC OBSTRUCTIVE AIRWAYS DISEASE
     Dosage: 18 MCG (18 MCG), IH
     Route: 055
     Dates: start: 20040819
  2. ADAVAIR (SERETIDE MITE) [Concomitant]
  3. ZETA IEZETIMIBE) [Concomitant]
  4. CARDIZEM [Concomitant]
  5. AVAPRO [Concomitant]
  6. VITAMINS (VITANINS [Concomitant]
  7. ACETYLSALICYLIC ACID SRT [Concomitant]
  8. ALEVE [Concomitant]

REACTIONS (3)
  - NERVOUSNESS [None]
  - TENSION [None]
  - TREMOR [None]
